FAERS Safety Report 8837133 (Version 2)
Quarter: 2012Q4

REPORT INFORMATION
  Report Type: 
  Country: US (occurrence: US)
  Receive Date: 20121012
  Receipt Date: 20121109
  Transmission Date: 20130627
  Serious: Yes (Hospitalization)
  Sender: FDA-Public Use
  Company Number: US-BRISTOL-MYERS SQUIBB COMPANY-17015132

PATIENT
  Age: 59 Year
  Sex: Male
  Weight: 63 kg

DRUGS (3)
  1. BARACLUDE [Suspect]
     Indication: HEPATITIS B
     Dosage: start with 1 mg
     Route: 048
  2. HYDROCODONE [Suspect]
  3. TAMSULOSIN HCL [Suspect]

REACTIONS (3)
  - Appendicitis [Unknown]
  - Hyperhidrosis [Unknown]
  - Fatigue [Unknown]
